FAERS Safety Report 5700981-X (Version None)
Quarter: 2008Q2

REPORT INFORMATION
  Report Type: 
  Country: None (occurrence: None)
  Receive Date: 20080410
  Receipt Date: 20080328
  Transmission Date: 20081010
  Serious: Yes (Death, Hospitalization)
  Sender: FDA-Public Use
  Company Number: US-JNJFOC-20071001971

PATIENT
  Sex: Female
  Weight: 53.07 kg

DRUGS (2)
  1. ORTHO EVRA [Suspect]
     Indication: MENORRHAGIA
     Route: 062
  2. CALCIUM GLUCONATE [Concomitant]
     Indication: OSTEOPENIA
     Route: 048

REACTIONS (4)
  - OFF LABEL USE [None]
  - PULMONARY EMBOLISM [None]
  - THROMBOSIS [None]
  - TRANSIENT ISCHAEMIC ATTACK [None]
